FAERS Safety Report 11060432 (Version 1)
Quarter: 2015Q2

REPORT INFORMATION
  Report Type: Spontaneous
  Country: US (occurrence: US)
  Receive Date: 20150423
  Receipt Date: 20150423
  Transmission Date: 20150821
  Serious: Yes (Congenital Anomaly, Other)
  Sender: FDA-Public Use
  Company Number: US-APOTEX-2015AP007869

PATIENT
  Age: 0 Year
  Sex: Female

DRUGS (5)
  1. WELLBUTRIN [Suspect]
     Active Substance: BUPROPION HYDROCHLORIDE
     Indication: PRODUCT USED FOR UNKNOWN INDICATION
     Dosage: UNK
     Route: 064
     Dates: end: 2003
  2. PROCARDIA [Suspect]
     Active Substance: NIFEDIPINE
     Indication: PRODUCT USED FOR UNKNOWN INDICATION
     Dosage: UNK
     Route: 064
     Dates: end: 2003
  3. PAXIL [Suspect]
     Active Substance: PAROXETINE HYDROCHLORIDE
     Indication: PRODUCT USED FOR UNKNOWN INDICATION
     Route: 064
  4. ALBUTEROL                          /00139501/ [Suspect]
     Active Substance: ALBUTEROL
     Indication: ASTHMA
     Dosage: UNK UNK, PRN
     Route: 064
     Dates: end: 2003
  5. BRETHINE [Suspect]
     Active Substance: TERBUTALINE SULFATE
     Indication: PRODUCT USED FOR UNKNOWN INDICATION
     Dosage: UNK
     Route: 064
     Dates: end: 2003

REACTIONS (19)
  - Hyperglycaemia [Recovered/Resolved]
  - Volvulus [Unknown]
  - Retinopathy of prematurity [Unknown]
  - Bronchopulmonary dysplasia [Unknown]
  - Sepsis neonatal [Recovered/Resolved]
  - Phlebitis [Recovered/Resolved]
  - Skin disorder [Recovered/Resolved]
  - Gastrooesophageal reflux disease [Unknown]
  - Neonatal hypotension [Unknown]
  - Dermatitis diaper [Recovering/Resolving]
  - Apnoea neonatal [Recovered/Resolved]
  - Premature baby [Unknown]
  - Foetal exposure during pregnancy [Unknown]
  - Pulmonary valve stenosis [Unknown]
  - Intestinal malrotation [Unknown]
  - Jaundice neonatal [Recovered/Resolved]
  - Conjunctivitis bacterial [Recovered/Resolved]
  - Patent ductus arteriosus [Recovered/Resolved]
  - Neonatal respiratory distress syndrome [Unknown]

NARRATIVE: CASE EVENT DATE: 20000704
